FAERS Safety Report 5026793-0 (Version None)
Quarter: 2006Q2

REPORT INFORMATION
  Report Type: 
  Country: None (occurrence: None)
  Receive Date: 20060615
  Receipt Date: 20030205
  Transmission Date: 20061013
  Serious: Yes (Hospitalization, Other)
  Sender: FDA-Public Use
  Company Number: DE-ABBOTT-03P-062-0209875-01

PATIENT
  Sex: Female
  Weight: 60 kg

DRUGS (15)
  1. HUMIRA [Suspect]
     Indication: RHEUMATOID ARTHRITIS
     Route: 058
     Dates: start: 20001213, end: 20030218
  2. HUMIRA [Suspect]
     Route: 058
     Dates: start: 20030421, end: 20030908
  3. HUMIRA [Suspect]
     Route: 058
     Dates: start: 20031006, end: 20031201
  4. PREDNISONE [Concomitant]
     Indication: RHEUMATOID ARTHRITIS
     Route: 048
     Dates: start: 20000512
  5. DICLOFENAC RESINATE [Concomitant]
     Indication: RHEUMATOID ARTHRITIS
     Dosage: 2 TABLESPOONS
     Route: 048
     Dates: start: 19960501
  6. LEKOVIT CA [Concomitant]
     Indication: OSTEOPOROSIS PROPHYLAXIS
     Route: 048
     Dates: start: 20010914
  7. SANOPIN N [Concomitant]
     Indication: RESPIRATION ABNORMAL
     Dates: start: 20020802, end: 20020812
  8. ALLERGOSPASMIN [Concomitant]
     Indication: ASTHMA
     Dosage: 1 PUFF
     Dates: start: 20020930, end: 20021004
  9. ALLERGOSPASMIN [Concomitant]
     Dosage: 2 PUFFS
     Dates: start: 20021005, end: 20021005
  10. ALLERGOSPASMIN [Concomitant]
     Dates: start: 20021009, end: 20021009
  11. ALLERGOSPASMIN [Concomitant]
     Dosage: 1 PUFF
     Dates: start: 20030125, end: 20030125
  12. ACYCLOVIR [Concomitant]
     Indication: HERPES SIMPLEX
     Dosage: 0.5 CM
     Dates: start: 20030127
  13. METRONIDAZOLE [Concomitant]
     Indication: VAGINAL INFECTION
     Dates: start: 20021221, end: 20021226
  14. CA2+ [Concomitant]
     Indication: OSTEOPOROSIS PROPHYLAXIS
     Route: 048
     Dates: start: 20010914, end: 20030219
  15. COLECALCIFEROL [Concomitant]
     Indication: OSTEOPOROSIS PROPHYLAXIS
     Dosage: 880E
     Route: 048
     Dates: start: 20010914, end: 20030219

REACTIONS (1)
  - CHONDROMA [None]
